FAERS Safety Report 9097412 (Version 1)
Quarter: 2013Q1

REPORT INFORMATION
  Report Type: Spontaneous
  Country: FR (occurrence: FR)
  Receive Date: 20130212
  Receipt Date: 20130212
  Transmission Date: 20140127
  Serious: Yes (Congenital Anomaly, Other)
  Sender: FDA-Public Use
  Company Number: FR-RB-PR/990616/164

PATIENT
  Sex: Male

DRUGS (3)
  1. SUBUTEX [Suspect]
     Indication: DRUG DEPENDENCE
     Dosage: 6MG QD SUBLINGUAL - MOTHER MAY HAVE ADMINISTERED BY IV ROUTE
     Route: 064
  2. COCAINE [Suspect]
     Indication: DRUG DEPENDENCE
     Dosage: DRUG DETAILS UNKNOWN
     Route: 064
  3. HEROIN [Suspect]
     Indication: DRUG DEPENDENCE
     Dosage: DRUG DETAILS UNKNOWN
     Route: 064

REACTIONS (2)
  - Pelvi-ureteric obstruction [Unknown]
  - Foetal exposure during pregnancy [Recovered/Resolved]
